FAERS Safety Report 4607784-8 (Version None)
Quarter: 2005Q1

REPORT INFORMATION
  Report Type: 
  Country: None (occurrence: None)
  Receive Date: 20050314
  Receipt Date: 20050307
  Transmission Date: 20050727
  Serious: Yes (Other)
  Sender: FDA-Public Use
  Company Number: JP-GLAXOSMITHKLINE-B0374379A

PATIENT
  Age: 74 Year
  Sex: Male

DRUGS (2)
  1. ZOVIRAX [Suspect]
     Route: 031
     Dates: start: 20031208, end: 20041210
  2. FLUMETHOLON [Suspect]
     Route: 031
     Dates: start: 20031211, end: 20041210

REACTIONS (1)
  - CORNEAL EPITHELIUM DISORDER [None]
